FAERS Safety Report 20727516 (Version 1)
Quarter: 2022Q2

REPORT INFORMATION
  Report Type: Spontaneous
  Country: US (occurrence: None)
  Receive Date: 20220419
  Receipt Date: 20220419
  Transmission Date: 20220720
  Serious: No
  Sender: FDA-Public Use
  Company Number: US-ROCHE-2783453

PATIENT
  Sex: Male

DRUGS (2)
  1. AVASTIN [Suspect]
     Active Substance: BEVACIZUMAB
     Indication: Brain neoplasm malignant
     Route: 065
     Dates: start: 20210121
  2. AVASTIN [Suspect]
     Active Substance: BEVACIZUMAB
     Indication: Anaplastic astrocytoma

REACTIONS (1)
  - General physical health deterioration [Not Recovered/Not Resolved]
